FAERS Safety Report 4956323-0 (Version None)
Quarter: 2006Q1

REPORT INFORMATION
  Report Type: 
  Country: None (occurrence: None)
  Receive Date: 20060329
  Receipt Date: 20060322
  Transmission Date: 20060701
  Serious: Yes (Death, Other)
  Sender: FDA-Public Use
  Company Number: US-AVENTIS-200612849US

PATIENT
  Age: 70 Year
  Sex: Female
  Weight: 109 kg

DRUGS (1)
  1. LOVENOX [Suspect]
     Indication: ATRIAL FIBRILLATION
     Dates: start: 20060304

REACTIONS (3)
  - BLOOD CREATININE INCREASED [None]
  - RENAL IMPAIRMENT [None]
  - RETROPERITONEAL HAEMORRHAGE [None]
